FAERS Safety Report 24692464 (Version 1)
Quarter: 2024Q4

REPORT INFORMATION
  Report Type: Report from Study
  Country: MX (occurrence: MX)
  Receive Date: 20241203
  Receipt Date: 20241203
  Transmission Date: 20250115
  Serious: Yes (Other)
  Sender: NOVARTIS
  Company Number: MX-002147023-NVSC2024MX054226

PATIENT
  Sex: Female
  Weight: 60 kg

DRUGS (8)
  1. TASIGNA [Suspect]
     Active Substance: NILOTINIB
     Indication: Chronic myeloid leukaemia
     Dosage: 200 MG, Q12H
     Route: 048
     Dates: start: 201104
  2. TASIGNA [Suspect]
     Active Substance: NILOTINIB
     Dosage: 2 OF 200 MG, QD
     Route: 048
     Dates: start: 2011
  3. TASIGNA [Suspect]
     Active Substance: NILOTINIB
     Dosage: 200 MG, Q12H (2 OF 200 MG) 2 DOSAGE FORM, Q12H (FOR APPROXIMATELY 10 YEARS AGO)
     Route: 048
     Dates: start: 2014
  4. TASIGNA [Suspect]
     Active Substance: NILOTINIB
     Dosage: 200 MG, Q12H (2 X 200 MG)
     Route: 048
  5. TASIGNA [Suspect]
     Active Substance: NILOTINIB
     Dosage: UNK
     Route: 048
  6. TASIGNA [Suspect]
     Active Substance: NILOTINIB
     Dosage: 400 MG, QD (2 CAPSULES OF 200 MG)
     Route: 048
  7. TASIGNA [Suspect]
     Active Substance: NILOTINIB
     Dosage: 2 DOSAGE FORM, Q12H (2 OF 200 MG)
     Route: 048
  8. GLIVEC [Suspect]
     Active Substance: IMATINIB MESYLATE
     Indication: Chronic myeloid leukaemia
     Dosage: 2 DOSAGE FORM, QD (2 X 400MG)
     Route: 048
     Dates: start: 2002, end: 2014

REACTIONS (39)
  - Hypothyroidism [Not Recovered/Not Resolved]
  - Colitis [Recovered/Resolved]
  - Colitis [Recovered/Resolved]
  - Disease recurrence [Recovered/Resolved]
  - Osteoarthritis [Not Recovered/Not Resolved]
  - Colitis [Recovering/Resolving]
  - Amenorrhoea [Not Recovered/Not Resolved]
  - Premature menopause [Not Recovered/Not Resolved]
  - Frustration tolerance decreased [Recovering/Resolving]
  - Memory impairment [Not Recovered/Not Resolved]
  - Pain in extremity [Not Recovered/Not Resolved]
  - Gastritis [Recovered/Resolved]
  - Discomfort [Recovered/Resolved]
  - Negative thoughts [Recovering/Resolving]
  - Depressed mood [Recovering/Resolving]
  - Pain [Not Recovered/Not Resolved]
  - Stress [Recovering/Resolving]
  - Crying [Recovered/Resolved]
  - Bone disorder [Unknown]
  - Chondropathy [Not Recovered/Not Resolved]
  - Polydipsia [Unknown]
  - Feeling of despair [Recovering/Resolving]
  - Weight decreased [Recovered/Resolved]
  - Weight increased [Recovered/Resolved]
  - Anxiety [Recovering/Resolving]
  - Abdominal discomfort [Recovering/Resolving]
  - Decreased appetite [Recovered/Resolved]
  - Insomnia [Recovering/Resolving]
  - Fatigue [Not Recovered/Not Resolved]
  - Thyroid disorder [Not Recovered/Not Resolved]
  - Blood thyroid stimulating hormone increased [Recovering/Resolving]
  - Tri-iodothyronine free increased [Unknown]
  - Thyroxine free increased [Unknown]
  - Anger [Recovered/Resolved]
  - Arthralgia [Recovered/Resolved]
  - Neck pain [Recovered/Resolved]
  - Ear pain [Recovered/Resolved]
  - Headache [Recovered/Resolved]
  - Gastritis [Recovering/Resolving]

NARRATIVE: CASE EVENT DATE: 20140101
